FAERS Safety Report 9583421 (Version 1)
Quarter: 2013Q4

REPORT INFORMATION
  Report Type: Spontaneous
  Country: US (occurrence: US)
  Receive Date: 20131002
  Receipt Date: 20131002
  Transmission Date: 20140711
  Serious: No
  Sender: FDA-Public Use
  Company Number: US-AMGEN-USASP2013046844

PATIENT
  Age: 45 Year
  Sex: Female
  Weight: 104.31 kg

DRUGS (5)
  1. ENBREL [Suspect]
     Indication: PRODUCT USED FOR UNKNOWN INDICATION
     Dosage: 50 MG, QWK
     Route: 058
  2. IBUPROFEN [Concomitant]
     Dosage: 200 MG, UNK
  3. METHOTREXATE [Concomitant]
     Dosage: 2.5 MG, UNK
  4. HYDROXYCHLOROQUINE [Concomitant]
     Dosage: 200 MG, UNK
  5. LEUCOVORIN CA [Concomitant]
     Dosage: 200 MG, UNK

REACTIONS (3)
  - Dizziness [Unknown]
  - Headache [Unknown]
  - Rheumatoid arthritis [Recovering/Resolving]
